FAERS Safety Report 19229390 (Version 5)
Quarter: 2022Q1

REPORT INFORMATION
  Report Type: Spontaneous
  Country: US (occurrence: US)
  Receive Date: 20210506
  Receipt Date: 20220308
  Transmission Date: 20220424
  Serious: No
  Sender: FDA-Public Use
  Company Number: US-SA-SAC20210504001024

PATIENT
  Age: 41 Year
  Sex: Female

DRUGS (6)
  1. CERDELGA [Suspect]
     Active Substance: ELIGLUSTAT
     Indication: Gaucher^s disease
     Dosage: 84 MG, BID
     Route: 048
     Dates: start: 20210126
  2. CERDELGA [Suspect]
     Active Substance: ELIGLUSTAT
     Dosage: 84 MG, BID
     Route: 048
     Dates: start: 2021, end: 2021
  3. CERDELGA [Suspect]
     Active Substance: ELIGLUSTAT
     Dosage: 84 MG, BID
     Route: 048
     Dates: start: 2021
  4. MELATONIN [Concomitant]
     Active Substance: MELATONIN
     Dosage: UNK, PRN
  5. TUMS [Concomitant]
     Active Substance: CALCIUM CARBONATE
     Dosage: UNK
  6. ZOLPIDEM [Concomitant]
     Active Substance: ZOLPIDEM TARTRATE
     Dosage: UNK

REACTIONS (2)
  - Product dose omission in error [Unknown]
  - Product dose omission issue [Unknown]

NARRATIVE: CASE EVENT DATE: 20210101
